FAERS Safety Report 5163873-3 (Version None)
Quarter: 2006Q4

REPORT INFORMATION
  Report Type: 
  Country: None (occurrence: None)
  Receive Date: 20061124
  Receipt Date: 20061111
  Transmission Date: 20070319
  Serious: Yes (Other)
  Sender: FDA-Public Use
  Company Number: 2006112907

PATIENT
  Sex: Male
  Weight: 68.0396 kg

DRUGS (2)
  1. LYRICA [Suspect]
     Indication: HERPES VIRUS INFECTION
     Dosage: 50 MG (50 MG, 1 IN 1 D)
     Dates: start: 20060801
  2. LYRICA [Suspect]
     Indication: HERPES ZOSTER
     Dosage: 50 MG (50 MG, 1 IN 1 D)
     Dates: start: 20060801

REACTIONS (1)
  - CONVULSION [None]
